FAERS Safety Report 22235820 (Version 1)
Quarter: 2023Q2

REPORT INFORMATION
  Report Type: Spontaneous
  Country: US (occurrence: None)
  Receive Date: 20230420
  Receipt Date: 20230420
  Transmission Date: 20230721
  Serious: Yes (Disabling)
  Sender: FDA-Public Use
  Company Number: US-ROCHE-3262559

PATIENT
  Sex: Female

DRUGS (1)
  1. OCREVUS [Suspect]
     Active Substance: OCRELIZUMAB
     Indication: Progressive multiple sclerosis
     Route: 065

REACTIONS (5)
  - Blindness unilateral [Unknown]
  - Dyspnoea [Unknown]
  - Muscle spasms [Unknown]
  - Muscular weakness [Unknown]
  - Confusional state [Unknown]
